FAERS Safety Report 16064022 (Version 2)
Quarter: 2019Q1

REPORT INFORMATION
  Report Type: Spontaneous
  Country: US (occurrence: US)
  Receive Date: 20190312
  Receipt Date: 20190329
  Transmission Date: 20190418
  Serious: Yes (Other)
  Sender: FDA-Public Use
  Company Number: US-BAYER-2019-044570

PATIENT
  Age: 88 Year
  Sex: Male

DRUGS (23)
  1. ALIQOPA [Suspect]
     Active Substance: COPANLISIB
     Dosage: UNK
     Dates: start: 20180905, end: 20180905
  2. ALIQOPA [Suspect]
     Active Substance: COPANLISIB
     Dosage: UNK
     Dates: start: 20181024, end: 20181024
  3. ALIQOPA [Suspect]
     Active Substance: COPANLISIB
     Dosage: UNK
     Dates: start: 20181121, end: 20181121
  4. ALIQOPA [Suspect]
     Active Substance: COPANLISIB
     Dosage: UNK
     Dates: start: 20190130, end: 20190130
  5. ALIQOPA [Suspect]
     Active Substance: COPANLISIB
     Dosage: UNK
     Dates: start: 20190313, end: 20190313
  6. ALIQOPA [Suspect]
     Active Substance: COPANLISIB
     Dosage: UNK
     Dates: start: 20181219, end: 20181219
  7. ALIQOPA [Suspect]
     Active Substance: COPANLISIB
     Dosage: UNK
     Dates: start: 20190116, end: 20190116
  8. ALIQOPA [Suspect]
     Active Substance: COPANLISIB
     Dosage: UNK
     Dates: start: 20190123, end: 20190123
  9. NORVASC [Concomitant]
     Active Substance: AMLODIPINE BESYLATE
     Dosage: 5 MG, QD
  10. ALIQOPA [Suspect]
     Active Substance: COPANLISIB
     Dosage: UNK
     Dates: start: 20181107, end: 20181107
  11. ALIQOPA [Suspect]
     Active Substance: COPANLISIB
     Dosage: UNK
     Dates: start: 20190213, end: 20190213
  12. ALIQOPA [Suspect]
     Active Substance: COPANLISIB
     Dosage: UNK
     Dates: start: 20180926, end: 20180926
  13. ALIQOPA [Suspect]
     Active Substance: COPANLISIB
     Dosage: UNK
     Dates: start: 20190227, end: 20190227
  14. ALIQOPA [Suspect]
     Active Substance: COPANLISIB
     Dosage: UNK
     Dates: start: 20181010, end: 20181010
  15. ALIQOPA [Suspect]
     Active Substance: COPANLISIB
     Dosage: UNK
     Dates: start: 20181128, end: 20181128
  16. ALIQOPA [Suspect]
     Active Substance: COPANLISIB
     Dosage: UNK
     Dates: start: 20180912, end: 20180912
  17. ALIQOPA [Suspect]
     Active Substance: COPANLISIB
     Dosage: UNK
     Dates: start: 20190102, end: 20190102
  18. ALIQOPA [Suspect]
     Active Substance: COPANLISIB
     Dosage: UNK
     Dates: start: 20190220, end: 20190220
  19. ALIQOPA [Suspect]
     Active Substance: COPANLISIB
     Dosage: UNK
     Dates: start: 20180829, end: 20180829
  20. ALIQOPA [Suspect]
     Active Substance: COPANLISIB
     Dosage: UNK
     Dates: start: 20181003, end: 20181003
  21. ALIQOPA [Suspect]
     Active Substance: COPANLISIB
     Dosage: UNK
     Dates: start: 20181031, end: 20181031
  22. ALIQOPA [Suspect]
     Active Substance: COPANLISIB
     Dosage: UNK
     Dates: start: 20181205, end: 20181205
  23. ALIQOPA [Suspect]
     Active Substance: COPANLISIB
     Dosage: UNK
     Dates: start: 20181226, end: 20181226

REACTIONS (1)
  - Blood pressure increased [None]

NARRATIVE: CASE EVENT DATE: 20190220
